FAERS Safety Report 16675676 (Version 3)
Quarter: 2019Q3

REPORT INFORMATION
  Report Type: Report from Study
  Country: EC (occurrence: EC)
  Receive Date: 20190806
  Receipt Date: 20190926
  Transmission Date: 20191004
  Serious: Yes (Life-Threatening, Hospitalization)
  Sender: FDA-Public Use
  Company Number: PHHY2019EC177731

PATIENT
  Age: 50 Year
  Sex: Female

DRUGS (5)
  1. TASIGNA [Suspect]
     Active Substance: NILOTINIB
     Indication: CHRONIC MYELOID LEUKAEMIA
     Dosage: 400 MG, BID
     Route: 048
     Dates: start: 20160407, end: 20180421
  2. TASIGNA [Suspect]
     Active Substance: NILOTINIB
     Dosage: 400 MG, BID
     Route: 048
     Dates: start: 20190530
  3. NILOTINIB [Suspect]
     Active Substance: NILOTINIB
     Indication: PRODUCT USED FOR UNKNOWN INDICATION
     Dosage: UNK
     Route: 065
     Dates: start: 201903
  4. TASIGNA [Suspect]
     Active Substance: NILOTINIB
     Dosage: 400 MG, BID
     Route: 048
     Dates: start: 20180713, end: 20190205
  5. TASIGNA [Suspect]
     Active Substance: NILOTINIB
     Dosage: 600 MG, BID
     Route: 048
     Dates: start: 20180422, end: 20180712

REACTIONS (11)
  - Chronic myeloid leukaemia [Not Recovered/Not Resolved]
  - Tachycardia [Unknown]
  - Dyspnoea [Recovering/Resolving]
  - Pyrexia [Recovered/Resolved]
  - Malignant neoplasm progression [Not Recovered/Not Resolved]
  - Pneumonia [Unknown]
  - Pleuritic pain [Recovering/Resolving]
  - Bone pain [Recovered/Resolved]
  - Pneumonia [Recovered/Resolved]
  - Chills [Recovered/Resolved]
  - General physical health deterioration [Unknown]

NARRATIVE: CASE EVENT DATE: 2018
